FAERS Safety Report 18697040 (Version 1)
Quarter: 2021Q1

REPORT INFORMATION
  Report Type: Spontaneous
  Country: DE (occurrence: DE)
  Receive Date: 20210104
  Receipt Date: 20210104
  Transmission Date: 20210419
  Serious: Yes (Other)
  Sender: FDA-Public Use
  Company Number: DE-BAUSCH-BL-2020-034387

PATIENT
  Age: 87 Year
  Sex: Female

DRUGS (3)
  1. TIM?OPHTAL 0.25% SINE [Suspect]
     Active Substance: TIMOLOL MALEATE
     Indication: PRODUCT USED FOR UNKNOWN INDICATION
     Route: 065
     Dates: start: 2013, end: 2013
  2. TIMO EDO 0.25% [Suspect]
     Active Substance: TIMOLOL MALEATE
     Route: 065
     Dates: start: 2013
  3. TIMO EDO 0.25% [Suspect]
     Active Substance: TIMOLOL MALEATE
     Indication: PRODUCT USED FOR UNKNOWN INDICATION
     Route: 065
     Dates: start: 1989, end: 2013

REACTIONS (7)
  - Eye disorder [Not Recovered/Not Resolved]
  - Insurance issue [Unknown]
  - Eye irritation [Unknown]
  - Intraocular pressure decreased [Recovered/Resolved]
  - Surgery [Unknown]
  - Product availability issue [Unknown]
  - Headache [Not Recovered/Not Resolved]

NARRATIVE: CASE EVENT DATE: 2013
